FAERS Safety Report 4569387-3 (Version None)
Quarter: 2005Q1

REPORT INFORMATION
  Report Type: 
  Country: None (occurrence: None)
  Receive Date: 20050203
  Receipt Date: 20050125
  Transmission Date: 20050727
  Serious: Yes (Hospitalization)
  Sender: FDA-Public Use
  Company Number: ES-ROCHE-393424

PATIENT
  Age: 42 Year
  Sex: Female
  Weight: 61 kg

DRUGS (2)
  1. PEGASYS [Suspect]
     Indication: DRUG USE FOR UNKNOWN INDICATION
     Route: 058
     Dates: start: 20030221, end: 20040221
  2. COPEGUS [Concomitant]
     Indication: DRUG USE FOR UNKNOWN INDICATION
     Route: 048
     Dates: start: 20030221, end: 20040221

REACTIONS (2)
  - GOITRE [None]
  - THYROID NODULE REMOVAL [None]
